FAERS Safety Report 6672464-4 (Version None)
Quarter: 2010Q2

REPORT INFORMATION
  Report Type: 
  Country: None (occurrence: None)
  Receive Date: 20100408
  Receipt Date: 20100329
  Transmission Date: 20101027
  Serious: Yes (Other)
  Sender: FDA-Public Use
  Company Number: DE-NOVOPROD-306368

PATIENT

DRUGS (2)
  1. VICTOZA [Suspect]
     Indication: DRUG USE FOR UNKNOWN INDICATION
     Dosage: 0.6 MG, UNK
     Route: 058
     Dates: start: 20100212, end: 20100317
  2. VICTOZA [Suspect]
     Dosage: 1.2 MG, UNK
     Route: 058
     Dates: start: 20100318, end: 20100329

REACTIONS (1)
  - PHARYNGEAL OEDEMA [None]
